FAERS Safety Report 12689578 (Version 2)
Quarter: 2017Q1

REPORT INFORMATION
  Report Type: Spontaneous
  Country: US (occurrence: US)
  Receive Date: 20160826
  Receipt Date: 20170329
  Transmission Date: 20170428
  Serious: No
  Sender: FDA-Public Use
  Company Number: US-MYLANLABS-2016M1008442

PATIENT
  Sex: Female

DRUGS (21)
  1. NORVASC [Concomitant]
     Active Substance: AMLODIPINE BESYLATE
     Dosage: 10 MG, UNK
  2. PRILOSEC [Concomitant]
     Active Substance: OMEPRAZOLE MAGNESIUM
     Dosage: 20 MG, UNK
  3. AMBIEN CR [Concomitant]
     Active Substance: ZOLPIDEM TARTRATE
     Dosage: 12.5 MG, UNK
  4. VITAMIN D                          /00107901/ [Concomitant]
     Active Substance: ERGOCALCIFEROL
     Dosage: 50000 IU, QW
  5. FROVATRIPTAN. [Concomitant]
     Active Substance: FROVATRIPTAN
     Indication: MIGRAINE
     Dosage: X2 AS NEEDED
  6. CHLORTALIDONE [Suspect]
     Active Substance: CHLORTHALIDONE
     Dosage: 25 MG, UNK
  7. SALBUTAMOL [Concomitant]
     Active Substance: ALBUTEROL
     Dosage: UNK
  8. SPIRONOLACTONE. [Concomitant]
     Active Substance: SPIRONOLACTONE
     Dosage: X2
  9. POTASSIUM [Concomitant]
     Active Substance: POTASSIUM
     Dosage: IF TAKING LASIX
  10. SAVELLA [Concomitant]
     Active Substance: MILNACIPRAN HYDROCHLORIDE
     Dosage: X2
  11. KEPPRA [Concomitant]
     Active Substance: LEVETIRACETAM
     Dosage: X4
  12. KLONOPIN [Concomitant]
     Active Substance: CLONAZEPAM
     Dosage: X2
  13. PROVIGIL [Concomitant]
     Active Substance: MODAFINIL
     Dosage: X2
  14. LASIX [Concomitant]
     Active Substance: FUROSEMIDE
     Dosage: UNK, PRN
  15. PREDNISONE. [Concomitant]
     Active Substance: PREDNISONE
     Dosage: 10 MG, UNK
  16. PROPRANOLOL [Concomitant]
     Active Substance: PROPRANOLOL HYDROCHLORIDE
     Dosage: X2
  17. SYNTHROID [Concomitant]
     Active Substance: LEVOTHYROXINE SODIUM
     Dosage: 150 ?G, UNK
  18. TEMAZEPAM. [Suspect]
     Active Substance: TEMAZEPAM
     Dosage: 15 MG, UNK
  19. INDOMETHACIN                       /00003801/ [Concomitant]
     Active Substance: INDOMETHACIN
     Dosage: X3
  20. OXYCODONE [Concomitant]
     Active Substance: OXYCODONE
     Dosage: 40MG/1300MG PRN
  21. ZANAFLEX [Concomitant]
     Active Substance: TIZANIDINE HYDROCHLORIDE
     Dosage: 8 MG (4MG X2), X4 AS NEEDED

REACTIONS (2)
  - Overweight [Not Recovered/Not Resolved]
  - Drug ineffective [Not Recovered/Not Resolved]
